FAERS Safety Report 9986567 (Version 1)
Quarter: 2014Q1

REPORT INFORMATION
  Report Type: Report from Study
  Country: US (occurrence: US)
  Receive Date: 20140307
  Receipt Date: 20140307
  Transmission Date: 20141002
  Serious: Yes (Hospitalization)
  Sender: FDA-Public Use
  Company Number: US-ABBVIE-14P-163-1205656-00

PATIENT
  Age: 73 Year
  Sex: Female
  Weight: 87.62 kg

DRUGS (2)
  1. HUMIRA [Suspect]
     Indication: PSORIASIS
     Route: 058
     Dates: end: 201312
  2. HUMIRA [Suspect]
     Indication: PSORIATIC ARTHROPATHY

REACTIONS (3)
  - Uterine polyp [Recovered/Resolved]
  - Uterine cyst [Recovered/Resolved]
  - Psoriasis [Not Recovered/Not Resolved]
